FAERS Safety Report 20388088 (Version 2)
Quarter: 2022Q1

REPORT INFORMATION
  Report Type: Spontaneous
  Country: US (occurrence: US)
  Receive Date: 20220128
  Receipt Date: 20220315
  Transmission Date: 20220423
  Serious: Yes (Death, Life-Threatening, Hospitalization, Other)
  Sender: FDA-Public Use
  Company Number: US-PROCTER+GAMBLE-PH22000554

PATIENT
  Age: 34 Year
  Sex: Male

DRUGS (12)
  1. DIPHENHYDRAMINE HYDROCHLORIDE [Interacting]
     Active Substance: DIPHENHYDRAMINE HYDROCHLORIDE
     Dosage: UNK
  2. ETIZOLAM [Interacting]
     Active Substance: ETIZOLAM
     Dosage: UNK
  3. FENTANYL [Suspect]
     Active Substance: FENTANYL
     Dosage: UNK
  4. ALCOHOL [Suspect]
     Active Substance: ALCOHOL
     Dosage: UNK
  5. NORDAZEPAM [Suspect]
     Active Substance: NORDAZEPAM
  6. CITALOPRAM [Interacting]
     Active Substance: CITALOPRAM HYDROBROMIDE
     Dosage: UNK
  7. CODEINE [Interacting]
     Active Substance: CODEINE
  8. HYDROCODONE [Interacting]
     Active Substance: HYDROCODONE
  9. MORPHINE [Interacting]
     Active Substance: MORPHINE
  10. NORFLURAZEPAM [Suspect]
     Active Substance: NORFLURAZEPAM
     Dosage: UNK
  11. 6-ACETYLMORPHINE [Suspect]
     Active Substance: 6-ACETYLMORPHINE
     Dosage: UNK
  12. METHADONE [Concomitant]
     Active Substance: METHADONE HYDROCHLORIDE
     Indication: Drug withdrawal maintenance therapy

REACTIONS (11)
  - Toxicity to various agents [Fatal]
  - Unresponsive to stimuli [Fatal]
  - Respiratory depression [Fatal]
  - Pulmonary oedema [Fatal]
  - Drug interaction [Fatal]
  - Cardiac arrest [Fatal]
  - Apnoeic attack [Fatal]
  - Hepatic steatosis [Fatal]
  - Lymphadenopathy [Fatal]
  - Left ventricular hypertrophy [Fatal]
  - Alcohol abuse [Fatal]

NARRATIVE: CASE EVENT DATE: 20180901
